FAERS Safety Report 8157434 (Version 7)
Quarter: 2013Q4

REPORT INFORMATION
  Report Type: Spontaneous
  Country: US (occurrence: US)
  Receive Date: 20110927
  Receipt Date: 20131217
  Transmission Date: 20140711
  Serious: Yes (Other)
  Sender: FDA-Public Use
  Company Number: US-ASTRAZENECA-2010SE39274

PATIENT
  Age: 42 Year
  Sex: Female
  Weight: 122.5 kg

DRUGS (7)
  1. SEROQUEL [Suspect]
     Indication: BIPOLAR DISORDER
     Route: 048
     Dates: start: 2004
  2. SEROQUEL [Suspect]
     Indication: PSYCHOTIC DISORDER
     Route: 048
     Dates: start: 2004
  3. SEROQUEL [Suspect]
     Indication: BIPOLAR DISORDER
     Route: 048
     Dates: start: 2004
  4. SEROQUEL [Suspect]
     Indication: PSYCHOTIC DISORDER
     Route: 048
     Dates: start: 2004
  5. CITALOPRAM [Concomitant]
     Indication: SLEEP DISORDER
     Dates: start: 2008
  6. HYDROCHLOROTHIAZIDE [Concomitant]
     Indication: JOINT SWELLING
     Dosage: 20-25 MG
     Dates: start: 2011
  7. ALEVE [Concomitant]
     Indication: JOINT STIFFNESS
     Dosage: DAILY

REACTIONS (34)
  - Delusion [Unknown]
  - Therapeutic response unexpected [Not Recovered/Not Resolved]
  - Insomnia [Unknown]
  - Agitation [Unknown]
  - Depression [Unknown]
  - Malaise [Not Recovered/Not Resolved]
  - Emotional distress [Unknown]
  - Hot flush [Unknown]
  - Memory impairment [Unknown]
  - Anger [Unknown]
  - Alopecia [Unknown]
  - Inappropriate affect [Unknown]
  - Speech disorder [Not Recovered/Not Resolved]
  - Abdominal pain [Not Recovered/Not Resolved]
  - Disturbance in attention [Not Recovered/Not Resolved]
  - Pain [Not Recovered/Not Resolved]
  - Schizophrenia [Unknown]
  - Anxiety [Unknown]
  - Stupor [Unknown]
  - Chest pain [Unknown]
  - Cardiac discomfort [Unknown]
  - Exposure to toxic agent [Unknown]
  - Chills [Unknown]
  - Influenza like illness [Unknown]
  - Gonorrhoea [Unknown]
  - Affect lability [Unknown]
  - Irritability [Unknown]
  - Tremor [Unknown]
  - Pyrexia [Unknown]
  - Heart rate increased [Not Recovered/Not Resolved]
  - Intentional drug misuse [Unknown]
  - Drug ineffective [Unknown]
  - Bipolar disorder [Unknown]
  - Drug dose omission [Unknown]
